FAERS Safety Report 10832699 (Version 1)
Quarter: 2015Q1

REPORT INFORMATION
  Report Type: Report from Study
  Country: US (occurrence: US)
  Receive Date: 20150219
  Receipt Date: 20150219
  Transmission Date: 20150721
  Serious: No
  Sender: FDA-Public Use
  Company Number: US-ABBVIE-14P-163-1196136-00

PATIENT
  Age: 22 Year
  Sex: Female

DRUGS (11)
  1. HUMIRA [Suspect]
     Active Substance: ADALIMUMAB
     Dates: end: 201212
  2. FOLIC ACID. [Concomitant]
     Active Substance: FOLIC ACID
     Indication: ANAEMIA
     Route: 048
  3. ORTHOTRYCYCLINE LOW [Concomitant]
     Indication: CONTRACEPTION
     Dosage: 1 PILL
     Route: 048
  4. HUMIRA [Suspect]
     Active Substance: ADALIMUMAB
     Dates: start: 20110818, end: 20110818
  5. ZYRTEC [Concomitant]
     Active Substance: CETIRIZINE HYDROCHLORIDE
     Indication: SEASONAL ALLERGY
     Route: 048
  6. HUMIRA [Suspect]
     Active Substance: ADALIMUMAB
     Dates: end: 201201
  7. HUMIRA [Suspect]
     Active Substance: ADALIMUMAB
     Dates: start: 201212, end: 201311
  8. HUMIRA [Suspect]
     Active Substance: ADALIMUMAB
     Dates: end: 20111006
  9. HUMIRA [Suspect]
     Active Substance: ADALIMUMAB
     Dates: start: 201311
  10. VIT B 12 [Concomitant]
     Indication: ANAEMIA
     Route: 050
  11. HUMIRA [Suspect]
     Active Substance: ADALIMUMAB
     Indication: CROHN^S DISEASE
     Dates: start: 20110804, end: 20110804

REACTIONS (1)
  - Migraine [Recovered/Resolved]

NARRATIVE: CASE EVENT DATE: 20110804
